FAERS Safety Report 8261280 (Version 2)
Quarter: 2014Q1

REPORT INFORMATION
  Report Type: Spontaneous
  Country: US (occurrence: US)
  Receive Date: 20111123
  Receipt Date: 20140108
  Transmission Date: 20141002
  Serious: Yes (Death)
  Sender: FDA-Public Use
  Company Number: US-MYLANLABS-2011S1023717

PATIENT
  Age: 40 Year
  Sex: Male

DRUGS (3)
  1. TOPIRAMATE [Suspect]
     Indication: CONVULSION
     Route: 065
  2. VALPROATE SEMISODIUM [Concomitant]
     Indication: CONVULSION
     Route: 065
  3. METFORMIN W/ROSIGLITAZONE [Concomitant]
     Indication: CONVULSION
     Route: 065

REACTIONS (2)
  - Hyperthermia [Fatal]
  - Cardiac arrest [Fatal]
